FAERS Safety Report 8894692 (Version 4)
Quarter: 2013Q2

REPORT INFORMATION
  Report Type: Spontaneous
  Country: BR (occurrence: BR)
  Receive Date: 20121108
  Receipt Date: 20130619
  Transmission Date: 20140414
  Serious: Yes (Other)
  Sender: FDA-Public Use
  Company Number: BR-PFIZER INC-2010142477

PATIENT
  Age: 36 Year
  Sex: Female
  Weight: 68 kg

DRUGS (3)
  1. NORDETTE [Suspect]
     Indication: CONTRACEPTION
     Dosage: 1 DF, 1X/DAY, [LEVONORGESTREL 0.15MG/ ETHINYL ESTRADIOL0.03MG]
     Route: 048
     Dates: start: 19980506
  2. NORDETTE [Suspect]
     Dosage: 1 DF, 1X/DAY, [LEVONORGESTREL 0.15MG/ ETHINYL ESTRADIOL0.03MG]
     Route: 048
     Dates: start: 2011, end: 20130327
  3. NORDETTE [Suspect]
     Dosage: 1 DF, 1X/DAY, [LEVONORGESTREL 0.15MG/ ETHINYL ESTRADIOL0.03MG]
     Route: 048
     Dates: start: 20130531

REACTIONS (7)
  - Urinary tract infection [Unknown]
  - Cholelithiasis [Not Recovered/Not Resolved]
  - Pain [Unknown]
  - Metrorrhagia [Recovered/Resolved]
  - Inappropriate schedule of drug administration [Unknown]
  - Abnormal withdrawal bleeding [Recovered/Resolved]
  - Metrorrhagia [Recovered/Resolved]
